FAERS Safety Report 7715598-5 (Version None)
Quarter: 2011Q3

REPORT INFORMATION
  Report Type: 
  Country: None (occurrence: None)
  Receive Date: 20110829
  Receipt Date: 20110824
  Transmission Date: 20111222
  Serious: Yes (Other)
  Sender: FDA-Public Use
  Company Number: GB-ROCHE-798596

PATIENT

DRUGS (1)
  1. ACTEMRA [Suspect]
     Route: 065

REACTIONS (2)
  - DRUG INTOLERANCE [None]
  - MALAISE [None]
